FAERS Safety Report 5528744-9 (Version None)
Quarter: 2007Q4

REPORT INFORMATION
  Report Type: 
  Country: None (occurrence: None)
  Receive Date: 20071114
  Receipt Date: 20070410
  Transmission Date: 20080405
  Serious: Yes (Other)
  Sender: FDA-Public Use
  Company Number: PHEH2007US04904

PATIENT
  Sex: Male

DRUGS (1)
  1. MIOCHOL-E [Suspect]
     Dosage: ONCE/SINGLE, INTRAOCULAR INJ
     Route: 031
     Dates: start: 20070406, end: 20070406

REACTIONS (2)
  - CORNEAL OEDEMA [None]
  - CORNEAL OPACITY [None]
